FAERS Safety Report 9402858 (Version 1)
Quarter: 2013Q3

REPORT INFORMATION
  Report Type: Spontaneous
  Country: US (occurrence: None)
  Receive Date: 20130715
  Receipt Date: 20130715
  Transmission Date: 20140515
  Serious: No
  Sender: FDA-Public Use
  Company Number: None

PATIENT
  Age: 45 Year
  Sex: Male

DRUGS (3)
  1. TRUVADA [Suspect]
     Dosage: 1 TABLET
     Route: 048
  2. CLONAZEPAM [Concomitant]
  3. CLARITIN [Concomitant]

REACTIONS (3)
  - Arthralgia [None]
  - Hypercalcaemia [None]
  - Vitamin D increased [None]
